FAERS Safety Report 11506447 (Version 1)
Quarter: 2015Q3

REPORT INFORMATION
  Report Type: Spontaneous
  Country: US (occurrence: None)
  Receive Date: 20150914
  Receipt Date: 20150914
  Transmission Date: 20151125
  Serious: Yes (Death, Hospitalization)
  Sender: FDA-Public Use
  Company Number: None

PATIENT
  Age: 51 Year
  Sex: Female
  Weight: 89.81 kg

DRUGS (15)
  1. RECLAST [Suspect]
     Active Substance: ZOLEDRONIC ACID
     Indication: OSTEOPOROSIS PROPHYLAXIS
     Dosage: 1 TIME YEARLY
     Dates: start: 20140410
  2. GLUMETZA [Concomitant]
     Active Substance: METFORMIN HYDROCHLORIDE
  3. KEPPRA [Concomitant]
     Active Substance: LEVETIRACETAM
  4. HYDROCHLOROTHIAZIDE. [Concomitant]
     Active Substance: HYDROCHLOROTHIAZIDE
  5. PREMARIN [Concomitant]
     Active Substance: ESTROGENS, CONJUGATED
  6. SIMVASTATIN. [Concomitant]
     Active Substance: SIMVASTATIN
  7. CYCOSET [Concomitant]
  8. HYDROCORTIZONE [Concomitant]
     Active Substance: HYDROCORTISONE
  9. DESMOPRESSIN [Concomitant]
     Active Substance: DESMOPRESSIN
  10. JANUVIA [Concomitant]
     Active Substance: SITAGLIPTIN PHOSPHATE
  11. LEVOTHROID [Concomitant]
     Active Substance: LEVOTHYROXINE SODIUM
  12. WARFARIN [Concomitant]
     Active Substance: WARFARIN
  13. GABAPENTINE [Concomitant]
     Active Substance: GABAPENTIN
  14. MEDROXYPROGESTERONENORTRIPTYLINE [Concomitant]
  15. VITAMIN D [Concomitant]
     Active Substance: CHOLECALCIFEROL

REACTIONS (7)
  - Pyrexia [None]
  - General physical health deterioration [None]
  - Asthenia [None]
  - Cognitive disorder [None]
  - Feeling cold [None]
  - Activities of daily living impaired [None]
  - Hypophagia [None]

NARRATIVE: CASE EVENT DATE: 20140410
